FAERS Safety Report 21798618 (Version 1)
Quarter: 2022Q4

REPORT INFORMATION
  Report Type: Spontaneous
  Country: BE (occurrence: BE)
  Receive Date: 20221230
  Receipt Date: 20221230
  Transmission Date: 20230113
  Serious: No
  Sender: FDA-Public Use
  Company Number: BE-ALKEM LABORATORIES LIMITED-BE-ALKEM-2022-11930

PATIENT
  Age: 5 Year
  Sex: Male

DRUGS (1)
  1. SIROLIMUS [Suspect]
     Active Substance: SIROLIMUS
     Indication: Lymphatic disorder
     Dosage: 0.8 MILLIGRAM/SQ. METER, BID BODY SURFACE USING LIQUID SOLUTIONS
     Route: 065

REACTIONS (1)
  - Therapy partial responder [Unknown]
